FAERS Safety Report 18610957 (Version 1)
Quarter: 2020Q4

REPORT INFORMATION
  Report Type: Spontaneous
  Country: US (occurrence: US)
  Receive Date: 20201214
  Receipt Date: 20201214
  Transmission Date: 20210114
  Serious: No
  Sender: FDA-Public Use
  Company Number: US-CELGENEUS-USA-20201202343

PATIENT
  Sex: Female
  Weight: 63.56 kg

DRUGS (28)
  1. ACETAMINOPHEN. [Concomitant]
     Active Substance: ACETAMINOPHEN
     Indication: PLASMA CELL MYELOMA
     Route: 065
  2. ACETAMINOPHEN. [Concomitant]
     Active Substance: ACETAMINOPHEN
     Indication: PLASMA CELL MYELOMA
  3. VITAMIN D3 [Concomitant]
     Active Substance: CHOLECALCIFEROL
     Indication: SUPPLEMENTATION THERAPY
     Route: 065
  4. CALCIUM 600 + D [Concomitant]
     Active Substance: CALCIUM\VITAMIN D
     Indication: SPINAL CORD DISORDER
     Route: 065
  5. CALCIUM 600 + D [Concomitant]
     Active Substance: CALCIUM\VITAMIN D
     Indication: DRUG THERAPY
  6. METOPROLOL. [Concomitant]
     Active Substance: METOPROLOL
     Indication: DRUG THERAPY
  7. CHOLECALCIFEROL [Concomitant]
     Active Substance: CHOLECALCIFEROL
     Indication: SPINAL CORD DISORDER
     Route: 065
  8. REVLIMID [Suspect]
     Active Substance: LENALIDOMIDE
     Indication: PLASMA CELL MYELOMA
     Dosage: 15 MILLIGRAM
     Route: 048
     Dates: start: 20200724
  9. CLOCINE-PROBENECID [Concomitant]
     Indication: PLASMA CELL MYELOMA
     Route: 065
  10. VITAMIN D3 [Concomitant]
     Active Substance: CHOLECALCIFEROL
     Indication: PAIN
  11. LOSARTAN. [Concomitant]
     Active Substance: LOSARTAN
     Indication: SPINAL CORD DISORDER
     Route: 065
  12. LOSARTAN. [Concomitant]
     Active Substance: LOSARTAN
     Indication: DRUG THERAPY
  13. ACETAMINOPHEN. [Concomitant]
     Active Substance: ACETAMINOPHEN
     Indication: SUPPLEMENTATION THERAPY
  14. VITAMIN D3 [Concomitant]
     Active Substance: CHOLECALCIFEROL
     Indication: SUPPLEMENTATION THERAPY
  15. ACYCLOVIR. [Concomitant]
     Active Substance: ACYCLOVIR
     Indication: PLASMA CELL MYELOMA
     Route: 065
  16. PROCHLORPERAZINE. [Concomitant]
     Active Substance: PROCHLORPERAZINE
     Indication: PLASMA CELL MYELOMA
  17. CLOCINE-PROBENECID [Concomitant]
     Indication: PAIN
  18. CYMBALTA [Concomitant]
     Active Substance: DULOXETINE HYDROCHLORIDE
     Indication: DRUG THERAPY
  19. CALCIUM CARBONATE. [Concomitant]
     Active Substance: CALCIUM CARBONATE
     Indication: SUPPLEMENTATION THERAPY
     Route: 065
  20. DEXAMETHASONE. [Concomitant]
     Active Substance: DEXAMETHASONE
     Indication: PLASMA CELL MYELOMA
     Route: 065
  21. CLOCINE-PROBENECID [Concomitant]
     Indication: SUPPLEMENTATION THERAPY
  22. ACYCLOVIR. [Concomitant]
     Active Substance: ACYCLOVIR
     Indication: DRUG THERAPY
  23. CYMBALTA [Concomitant]
     Active Substance: DULOXETINE HYDROCHLORIDE
     Indication: PLASMA CELL MYELOMA
     Route: 065
  24. ASPIRIN. [Concomitant]
     Active Substance: ASPIRIN
     Indication: PLASMA CELL MYELOMA
     Route: 065
  25. CALCIUM CARBONATE. [Concomitant]
     Active Substance: CALCIUM CARBONATE
     Indication: DRUG THERAPY
  26. METOPROLOL. [Concomitant]
     Active Substance: METOPROLOL
     Indication: SUPPLEMENTATION THERAPY
     Route: 065
  27. CHOLECALCIFEROL [Concomitant]
     Active Substance: CHOLECALCIFEROL
     Indication: PLASMA CELL MYELOMA
  28. PROCHLORPERAZINE. [Concomitant]
     Active Substance: PROCHLORPERAZINE
     Indication: SPINAL CORD DISORDER
     Route: 065

REACTIONS (1)
  - Diarrhoea [Recovering/Resolving]

NARRATIVE: CASE EVENT DATE: 2020
